FAERS Safety Report 4914031-6 (Version None)
Quarter: 2006Q1

REPORT INFORMATION
  Report Type: 
  Country: None (occurrence: None)
  Receive Date: 20060216
  Receipt Date: 20060207
  Transmission Date: 20060701
  Serious: Yes (Hospitalization)
  Sender: FDA-Public Use
  Company Number: US-KINGPHARMUSA00001-K200600216

PATIENT
  Age: 16 Year
  Sex: Female

DRUGS (1)
  1. EPIPEN [Suspect]
     Dosage: UNK, SINGLE

REACTIONS (11)
  - ABDOMINAL PAIN UPPER [None]
  - ACCIDENTAL EXPOSURE [None]
  - APPLICATION SITE PALLOR [None]
  - BLOOD BLISTER [None]
  - DYSPNOEA [None]
  - HEADACHE [None]
  - INJECTION SITE PAIN [None]
  - OVERDOSE [None]
  - PALPITATIONS [None]
  - PANIC REACTION [None]
  - VISION BLURRED [None]
